FAERS Safety Report 6409174-4 (Version None)
Quarter: 2009Q4

REPORT INFORMATION
  Report Type: 
  Country: None (occurrence: None)
  Receive Date: 20091021
  Receipt Date: 20091013
  Transmission Date: 20100525
  Serious: Yes (Other)
  Sender: FDA-Public Use
  Company Number: PHHY2009IT39809

PATIENT
  Sex: Female

DRUGS (3)
  1. ZOMETA [Suspect]
     Indication: METASTASES TO BONE
     Dosage: 4 MG, QMO
     Route: 042
     Dates: start: 20070601, end: 20080630
  2. ARIMIDEX [Concomitant]
     Route: 048
  3. LEUPROLIDE ACETATE [Concomitant]
     Route: 030

REACTIONS (1)
  - OSTEOMYELITIS [None]
